FAERS Safety Report 8201244-3 (Version None)
Quarter: 2012Q1

REPORT INFORMATION
  Report Type: 
  Country: None (occurrence: None)
  Receive Date: 20120312
  Receipt Date: 20120229
  Transmission Date: 20120608
  Serious: Yes (Hospitalization, Disabling)
  Sender: FDA-Public Use
  Company Number: PHHY2010JP54527

PATIENT
  Sex: Female
  Weight: 52 kg

DRUGS (5)
  1. NIZATIDINE [Concomitant]
     Dosage: 2 DF, UNK
     Route: 048
     Dates: start: 20100427
  2. METHYCOBAL [Concomitant]
     Dosage: 1500 UG, UNK
     Route: 048
     Dates: start: 20100419
  3. DIOVAN [Concomitant]
     Indication: HYPERTENSION
     Dosage: 80 MG, UNK
     Route: 048
     Dates: start: 20100409
  4. RASILEZ [Suspect]
     Indication: HYPERTENSION
     Dosage: 150 MG, DAILY
     Route: 048
     Dates: start: 20100517, end: 20100812
  5. MUCODYNE [Concomitant]
     Route: 048
     Dates: start: 20100409

REACTIONS (3)
  - CEREBRAL HAEMORRHAGE [None]
  - HAEMOGLOBIN DECREASED [None]
  - HAEMATOCRIT DECREASED [None]
